FAERS Safety Report 9519814 (Version 3)
Quarter: 2013Q4

REPORT INFORMATION
  Report Type: Report from Study
  Country: GB (occurrence: GB)
  Receive Date: 20130912
  Receipt Date: 20131021
  Transmission Date: 20140711
  Serious: Yes (Death, Hospitalization)
  Sender: FDA-Public Use
  Company Number: GB-CELGENEUS-167-C4047-13070687

PATIENT
  Age: 56 Year
  Sex: Male

DRUGS (20)
  1. CHLORHEXIDINE [Concomitant]
     Indication: ORAL PAIN
     Dosage: 40 MILLILITER
     Route: 048
     Dates: start: 20130528, end: 20130711
  2. CHLORHEXIDINE [Concomitant]
     Indication: STOMATITIS
     Dosage: 5-10
     Route: 048
     Dates: start: 20130607
  3. LANSOPRAZOLE [Concomitant]
     Indication: GASTRITIS PROPHYLAXIS
     Dosage: 30 MILLIGRAM
     Route: 048
     Dates: start: 20121019, end: 20130711
  4. ALLOPURINOL [Concomitant]
     Indication: PROPHYLAXIS
     Dosage: 300 MILLIGRAM
     Route: 048
     Dates: end: 20130711
  5. CO-AMOXICLAV [Concomitant]
     Indication: INFECTION
     Dosage: 500/125
     Route: 048
     Dates: start: 20130531, end: 20130711
  6. ZOMORPH [Concomitant]
     Indication: PAIN PROPHYLAXIS
     Dosage: 60 MILLIGRAM
     Route: 048
     Dates: end: 20130711
  7. ZOMORPH [Concomitant]
     Indication: PAIN
  8. ZOLEDRONIC ACID [Concomitant]
     Indication: PROPHYLAXIS
     Route: 041
     Dates: start: 20121205, end: 20130711
  9. MACROGOL [Concomitant]
     Indication: CONSTIPATION PROPHYLAXIS
     Route: 048
     Dates: end: 20130711
  10. MACROGOL [Concomitant]
     Indication: CONSTIPATION
  11. MUCAINE [Concomitant]
     Indication: GASTRITIS PROPHYLAXIS
     Dosage: 40 MILLILITER
     Route: 048
     Dates: end: 20130711
  12. METOCLOPRAMIDE [Concomitant]
     Indication: NAUSEA
     Dosage: 40 MILLIGRAM
     Route: 048
     Dates: end: 20130711
  13. ASPIRINE [Concomitant]
     Indication: THROMBOSIS PROPHYLAXIS
     Dosage: 75 MILLIGRAM
     Route: 048
     Dates: start: 20130528, end: 20130531
  14. NALOXONE [Concomitant]
     Indication: OVERDOSE
     Route: 041
     Dates: start: 20130706, end: 20130706
  15. RANITIDINE [Concomitant]
     Indication: GASTROOESOPHAGEAL REFLUX PROPHYLAXIS
     Dosage: 150 MILLIGRAM
     Route: 065
     Dates: start: 20130528, end: 20130711
  16. PARACETAMOL [Concomitant]
     Indication: PAIN
     Route: 048
     Dates: end: 20130711
  17. CC-4047 [Suspect]
     Indication: PLASMA CELL MYELOMA
     Dosage: 4 MILLIGRAM
     Route: 048
     Dates: start: 20130528, end: 20130614
  18. CC-4047 [Suspect]
     Dosage: 3 MILLIGRAM
     Route: 048
     Dates: start: 20130625, end: 20130706
  19. DEXAMETHASONE [Suspect]
     Indication: PLASMA CELL MYELOMA
     Dosage: 40 MILLIGRAM
     Route: 065
     Dates: start: 20130528, end: 20130618
  20. DEXAMETHASONE [Suspect]
     Dosage: 40 MILLIGRAM
     Route: 065
     Dates: start: 20130625, end: 20130706

REACTIONS (9)
  - Epistaxis [Recovered/Resolved]
  - Thrombocytopenia [Not Recovered/Not Resolved]
  - Lower respiratory tract infection [Recovered/Resolved]
  - Febrile neutropenia [Recovered/Resolved]
  - Sinus bradycardia [Recovered/Resolved]
  - Sepsis [Fatal]
  - Plasma cell myeloma [Fatal]
  - Hypercalcaemia [Not Recovered/Not Resolved]
  - Anaemia [Recovered/Resolved]
